FAERS Safety Report 17339924 (Version 3)
Quarter: 2020Q3

REPORT INFORMATION
  Report Type: Report from Study
  Country: JP (occurrence: JP)
  Receive Date: 20200129
  Receipt Date: 20200721
  Transmission Date: 20201102
  Serious: Yes (Hospitalization)
  Sender: FDA-Public Use
  Company Number: JP-JNJFOC-20200141566

PATIENT
  Age: 85 Year
  Sex: Male

DRUGS (40)
  1. ABIRATERONE ACETATE. [Suspect]
     Active Substance: ABIRATERONE ACETATE
     Route: 048
     Dates: start: 20191016, end: 20191018
  2. OLAPARIB. [Suspect]
     Active Substance: OLAPARIB
     Route: 048
     Dates: start: 20191113, end: 20191113
  3. PREDNISONE. [Suspect]
     Active Substance: PREDNISONE
     Route: 048
     Dates: start: 20190918, end: 20191001
  4. PREDNISONE. [Suspect]
     Active Substance: PREDNISONE
     Route: 048
     Dates: start: 20191113, end: 20191210
  5. PREDNISONE. [Suspect]
     Active Substance: PREDNISONE
     Route: 048
     Dates: start: 20200527, end: 20200623
  6. OLAPARIB. [Suspect]
     Active Substance: OLAPARIB
     Route: 048
     Dates: start: 20191016, end: 20191018
  7. PREDNISONE. [Suspect]
     Active Substance: PREDNISONE
     Indication: HORMONE-REFRACTORY PROSTATE CANCER
     Route: 048
     Dates: start: 20190727, end: 20190806
  8. OLAPARIB. [Suspect]
     Active Substance: OLAPARIB
     Route: 048
     Dates: start: 20190807, end: 20190820
  9. OLAPARIB. [Suspect]
     Active Substance: OLAPARIB
     Route: 048
     Dates: start: 20191002, end: 20191015
  10. OLAPARIB. [Suspect]
     Active Substance: OLAPARIB
     Route: 048
     Dates: start: 20191019, end: 20191019
  11. OLAPARIB. [Suspect]
     Active Substance: OLAPARIB
     Route: 048
     Dates: start: 20200624, end: 20200624
  12. PREDNISONE. [Suspect]
     Active Substance: PREDNISONE
     Route: 048
     Dates: start: 20190807, end: 20190820
  13. ABIRATERONE ACETATE. [Suspect]
     Active Substance: ABIRATERONE ACETATE
     Route: 048
     Dates: start: 20190807, end: 20190820
  14. ABIRATERONE ACETATE. [Suspect]
     Active Substance: ABIRATERONE ACETATE
     Route: 048
     Dates: start: 20191002, end: 20191015
  15. ABIRATERONE ACETATE. [Suspect]
     Active Substance: ABIRATERONE ACETATE
     Route: 048
     Dates: start: 20200527, end: 20200623
  16. OLAPARIB. [Suspect]
     Active Substance: OLAPARIB
     Route: 048
     Dates: start: 20190821, end: 20190903
  17. OLAPARIB. [Suspect]
     Active Substance: OLAPARIB
     Route: 048
     Dates: start: 20191114, end: 20191210
  18. OLAPARIB. [Suspect]
     Active Substance: OLAPARIB
     Route: 048
     Dates: start: 20200428, end: 20200525
  19. OLAPARIB. [Suspect]
     Active Substance: OLAPARIB
     Route: 048
     Dates: start: 20200626
  20. PREDNISONE. [Suspect]
     Active Substance: PREDNISONE
     Route: 048
     Dates: start: 20190821, end: 20190903
  21. PREDNISONE. [Suspect]
     Active Substance: PREDNISONE
     Route: 048
     Dates: start: 20190904, end: 20190917
  22. ABIRATERONE ACETATE. [Suspect]
     Active Substance: ABIRATERONE ACETATE
     Route: 048
     Dates: start: 20200428, end: 20200526
  23. ABIRATERONE ACETATE. [Suspect]
     Active Substance: ABIRATERONE ACETATE
     Route: 048
     Dates: start: 20200624
  24. OLAPARIB. [Suspect]
     Active Substance: OLAPARIB
     Route: 048
     Dates: start: 20200526, end: 20200526
  25. OLAPARIB. [Suspect]
     Active Substance: OLAPARIB
     Route: 048
     Dates: start: 20200527, end: 20200623
  26. PREDNISONE. [Suspect]
     Active Substance: PREDNISONE
     Route: 048
     Dates: start: 20191016, end: 20191112
  27. ABIRATERONE ACETATE. [Suspect]
     Active Substance: ABIRATERONE ACETATE
     Indication: HORMONE-REFRACTORY PROSTATE CANCER
     Route: 048
     Dates: start: 20190727, end: 20190806
  28. ABIRATERONE ACETATE. [Suspect]
     Active Substance: ABIRATERONE ACETATE
     Route: 048
     Dates: start: 20190821, end: 20190903
  29. OLAPARIB. [Suspect]
     Active Substance: OLAPARIB
     Route: 048
     Dates: start: 20191211, end: 20200427
  30. PREDNISONE. [Suspect]
     Active Substance: PREDNISONE
     Route: 048
     Dates: start: 20191211
  31. PREDNISONE. [Suspect]
     Active Substance: PREDNISONE
     Route: 048
     Dates: start: 20200428, end: 20200526
  32. ABIRATERONE ACETATE. [Suspect]
     Active Substance: ABIRATERONE ACETATE
     Route: 048
     Dates: start: 20190904, end: 20190917
  33. PREDNISONE. [Suspect]
     Active Substance: PREDNISONE
     Route: 048
     Dates: start: 20191211, end: 20200427
  34. PREDNISONE. [Suspect]
     Active Substance: PREDNISONE
     Route: 048
     Dates: start: 20200624
  35. ABIRATERONE ACETATE. [Suspect]
     Active Substance: ABIRATERONE ACETATE
     Route: 048
     Dates: start: 20190918, end: 20191001
  36. ABIRATERONE ACETATE. [Suspect]
     Active Substance: ABIRATERONE ACETATE
     Route: 048
     Dates: start: 20191114, end: 20200427
  37. OLAPARIB. [Suspect]
     Active Substance: OLAPARIB
     Indication: HORMONE-REFRACTORY PROSTATE CANCER
     Route: 048
     Dates: start: 20190727, end: 20190806
  38. OLAPARIB. [Suspect]
     Active Substance: OLAPARIB
     Route: 048
     Dates: start: 20190904, end: 20190917
  39. OLAPARIB. [Suspect]
     Active Substance: OLAPARIB
     Route: 048
     Dates: start: 20190918, end: 20191001
  40. PREDNISONE. [Suspect]
     Active Substance: PREDNISONE
     Route: 048
     Dates: start: 20191002, end: 20191015

REACTIONS (1)
  - Pulmonary embolism [Recovering/Resolving]

NARRATIVE: CASE EVENT DATE: 20200108
